FAERS Safety Report 5583952-6 (Version None)
Quarter: 2008Q1

REPORT INFORMATION
  Report Type: 
  Country: None (occurrence: None)
  Receive Date: 20080103
  Receipt Date: 20080103
  Transmission Date: 20080703
  Serious: Yes (Hospitalization, Disabling)
  Sender: FDA-Public Use
  Company Number: None

PATIENT
  Age: 74 Year
  Sex: Female
  Weight: 67 kg

DRUGS (15)
  1. ARIXTRA [Suspect]
     Indication: ANTICOAGULANT THERAPY
     Dosage: 2.5MG DAILY SQ
     Route: 058
     Dates: start: 20080101
  2. ARIXTRA [Suspect]
     Indication: SURGERY
     Dosage: 2.5MG DAILY SQ
     Route: 058
     Dates: start: 20080101
  3. COUMADIN [Suspect]
     Indication: ANTICOAGULANT THERAPY
     Dosage: 1MG DAILY PO
     Route: 048
     Dates: start: 20080108
  4. COUMADIN [Suspect]
     Indication: SURGERY
     Dosage: 1MG DAILY PO
     Route: 048
     Dates: start: 20080108
  5. VICODIN [Concomitant]
  6. SEROQUEL [Concomitant]
  7. SINEMET [Concomitant]
  8. AMBIEN [Concomitant]
  9. FUROSEMIDE [Concomitant]
  10. LEVOTHYROXINE SODIUM [Concomitant]
  11. LISINOPRIL [Concomitant]
  12. LIPITOR [Concomitant]
  13. MIRAPEX [Concomitant]
  14. LITHIUM CARBONATE [Concomitant]
  15. ACTONEL [Concomitant]

REACTIONS (7)
  - CONTUSION [None]
  - DISORIENTATION [None]
  - DYSPNOEA [None]
  - ECCHYMOSIS [None]
  - HAEMATOCRIT DECREASED [None]
  - HAEMOGLOBIN DECREASED [None]
  - OCCULT BLOOD POSITIVE [None]
